FAERS Safety Report 9207367 (Version 1)
Quarter: 2013Q1

REPORT INFORMATION
  Report Type: Spontaneous
  Country: US (occurrence: None)
  Receive Date: 20120808
  Receipt Date: 20120808
  Transmission Date: 20140127
  Serious: Yes (Disabling)
  Sender: FDA-Public Use
  Company Number: TIR-01216

PATIENT
  Age: 48 Year
  Sex: Female
  Weight: 68.04 kg

DRUGS (2)
  1. TIROSINT [Suspect]
     Indication: HYPOTHYROIDISM
     Dosage: CASPULE BEFORE BREAKFAST EACH MORNING
     Route: 048
     Dates: start: 201206
  2. SAVELLA (MILNACIPRAN HYDROCHLORIDE) [Concomitant]

REACTIONS (1)
  - Fatigue [None]
